FAERS Safety Report 8415019-3 (Version None)
Quarter: 2012Q2

REPORT INFORMATION
  Report Type: 
  Country: None (occurrence: None)
  Receive Date: 20120606
  Receipt Date: 20120528
  Transmission Date: 20120825
  Serious: Yes (Hospitalization)
  Sender: FDA-Public Use
  Company Number: JP-VERTEX PHARMACEUTICALS INC.-AE-2012-006753

PATIENT
  Age: 59 Year
  Sex: Female

DRUGS (10)
  1. PEGINTERFERON ALFA-2B [Concomitant]
     Indication: HEPATITIS C
     Route: 058
     Dates: start: 20120406, end: 20120502
  2. REBETOL [Concomitant]
     Indication: HEPATITIS C
     Route: 048
     Dates: start: 20120406, end: 20120425
  3. TELAVIC (TELAPREVIR) [Suspect]
     Route: 048
     Dates: start: 20120515
  4. PEGINTERFERON ALFA-2B [Concomitant]
     Route: 058
     Dates: start: 20120511
  5. TELAVIC (TELAPREVIR) [Suspect]
     Indication: HEPATITIS C
     Route: 048
     Dates: start: 20120406, end: 20120514
  6. REBETOL [Concomitant]
     Route: 048
     Dates: end: 20120524
  7. TELAVIC (TELAPREVIR) [Suspect]
     Route: 048
     Dates: start: 20120522, end: 20120524
  8. REBETOL [Concomitant]
     Route: 048
     Dates: start: 20120426, end: 20120507
  9. OLMESARTAN MEDOXOMIL [Concomitant]
     Route: 048
  10. PEGINTERFERON ALFA-2B [Concomitant]
     Route: 058
     Dates: end: 20120518

REACTIONS (1)
  - MALAISE [None]
